FAERS Safety Report 5192717-9 (Version None)
Quarter: 2006Q4

REPORT INFORMATION
  Report Type: 
  Country: None (occurrence: None)
  Receive Date: 20061228
  Receipt Date: 20060428
  Transmission Date: 20070319
  Serious: Yes (Hospitalization)
  Sender: FDA-Public Use
  Company Number: PHHO2006KR06836

PATIENT
  Age: 59 Year
  Sex: Male
  Weight: 68.2 kg

DRUGS (4)
  1. MYFORTIC [Suspect]
     Indication: RENAL TRANSPLANT
     Dosage: 1440 MG / DAY
     Route: 048
     Dates: start: 20060325
  2. MYFORTIC [Suspect]
     Dosage: 540 MG DAILY
     Route: 048
  3. METHYLPREDNISOLONE 16MG TAB [Concomitant]
     Indication: RENAL TRANSPLANT
     Dosage: 16 MG / DAY
     Route: 048
     Dates: start: 20060325
  4. NEORAL [Suspect]
     Indication: RENAL TRANSPLANT
     Dosage: 750 MG / DAILY
     Route: 048
     Dates: start: 20060325

REACTIONS (14)
  - ANORECTAL DISORDER [None]
  - ASCITES [None]
  - BLOOD CREATININE INCREASED [None]
  - CHILLS [None]
  - CYTOMEGALOVIRUS INFECTION [None]
  - DIABETES MELLITUS INADEQUATE CONTROL [None]
  - DISEASE PROGRESSION [None]
  - DRUG INEFFECTIVE [None]
  - GLOMERULAR FILTRATION RATE DECREASED [None]
  - KIDNEY TRANSPLANT REJECTION [None]
  - LYMPHOCELE [None]
  - OEDEMA [None]
  - ORAL INTAKE REDUCED [None]
  - PURULENT DISCHARGE [None]
